FAERS Safety Report 14254947 (Version 2)
Quarter: 2017Q4

REPORT INFORMATION
  Report Type: Report from Study
  Country: BR (occurrence: BR)
  Receive Date: 20171206
  Receipt Date: 20171211
  Transmission Date: 20180321
  Serious: Yes (Other)
  Sender: FDA-Public Use
  Company Number: PHHY2017BR175014

PATIENT
  Sex: Female
  Weight: 64 kg

DRUGS (1)
  1. VOTRIENT [Suspect]
     Active Substance: PAZOPANIB HYDROCHLORIDE
     Indication: METASTATIC RENAL CELL CARCINOMA
     Dosage: 800 MG, QD
     Route: 048
     Dates: start: 20171007

REACTIONS (8)
  - Eating disorder [Not Recovered/Not Resolved]
  - Hypersomnia [Not Recovered/Not Resolved]
  - Vomiting [Unknown]
  - Depressed mood [Unknown]
  - Anxiety [Unknown]
  - Metastasis [Unknown]
  - Pain [Unknown]
  - Weight decreased [Unknown]
